FAERS Safety Report 16497986 (Version 1)
Quarter: 2019Q2

REPORT INFORMATION
  Report Type: Report from Study
  Country: JP (occurrence: JP)
  Receive Date: 20190628
  Receipt Date: 20190628
  Transmission Date: 20190711
  Serious: Yes (Other)
  Sender: FDA-Public Use
  Company Number: JP-ASTELLAS-2017JP010301

PATIENT
  Age: 74 Year
  Sex: Male

DRUGS (47)
  1. FLUTAMIDE. [Suspect]
     Active Substance: FLUTAMIDE
     Indication: HORMONE-REFRACTORY PROSTATE CANCER
     Route: 048
     Dates: start: 20161217, end: 20170412
  2. NAFTOPIDIL [Concomitant]
     Active Substance: NAFTOPIDIL
     Indication: DYSURIA
     Route: 048
  3. DEXAMETHASONE SODIUM PHOSPHATE. [Concomitant]
     Active Substance: DEXAMETHASONE SODIUM PHOSPHATE
     Indication: CATARACT OPERATION
     Dosage: UNK UNK, UNKNOWN FREQ.
     Route: 061
     Dates: start: 20170614, end: 20170614
  4. FLUOROMETHOLONE. [Concomitant]
     Active Substance: FLUOROMETHOLONE
     Indication: CATARACT OPERATION
  5. DENOSUMAB [Concomitant]
     Active Substance: DENOSUMAB
     Indication: METASTASES TO BONE
     Dosage: 120 MG, EVERY 3 MONTHS
     Route: 058
     Dates: start: 20170630
  6. CLEAR BONE [Concomitant]
     Dosage: UNK UNK, UNKNOWN FREQ.
     Route: 042
     Dates: start: 20180126, end: 20180126
  7. NEPAFENAC [Concomitant]
     Active Substance: NEPAFENAC
     Indication: CATARACT OPERATION
  8. CLEAR BONE [Concomitant]
     Dosage: UNK UNK, UNKNOWN FREQ.
     Route: 042
     Dates: start: 20190329, end: 20190329
  9. CALCIUM L-ASPARTATE [Concomitant]
     Indication: PROPHYLAXIS
     Route: 048
     Dates: start: 20170630
  10. IOMERON [Suspect]
     Active Substance: IOMEPROL
     Indication: COMPUTERISED TOMOGRAM
     Dosage: UNK UNK, UNKNOWN FREQ.
     Route: 042
     Dates: start: 20171115, end: 20171115
  11. OPALMON [Concomitant]
     Active Substance: LIMAPROST
     Indication: SPINAL STENOSIS
     Route: 048
  12. DEXAMETHASONE SODIUM PHOSPHATE. [Concomitant]
     Active Substance: DEXAMETHASONE SODIUM PHOSPHATE
     Indication: CATARACT OPERATION
     Dosage: UNK UNK, UNKNOWN FREQ.
     Route: 061
     Dates: start: 20170607, end: 20170607
  13. XYLOCAINE WITH EPINEPHRINE [Concomitant]
     Active Substance: EPINEPHRINE BITARTRATE\LIDOCAINE HYDROCHLORIDE
     Indication: CATARACT OPERATION
     Dosage: UNK UNK, UNKNOWN FREQ.
     Route: 061
     Dates: start: 20170607, end: 20170607
  14. IOMERON [Suspect]
     Active Substance: IOMEPROL
     Dosage: UNK UNK, UNKNOWN FREQ.
     Route: 042
     Dates: start: 20180209, end: 20180209
  15. IOMERON [Suspect]
     Active Substance: IOMEPROL
     Dosage: UNK UNK, UNKNOWN FREQ.
     Route: 042
     Dates: start: 20180727, end: 20180727
  16. METFORMIN HYDROCHLORIDE. [Concomitant]
     Active Substance: METFORMIN HYDROCHLORIDE
     Indication: TYPE 2 DIABETES MELLITUS
     Route: 048
  17. URSODEOXYCHOLIC ACID [Concomitant]
     Active Substance: URSODIOL
     Indication: HEPATIC FUNCTION ABNORMAL
     Route: 048
     Dates: start: 20170113, end: 20170407
  18. WYSTAL [Concomitant]
     Active Substance: CEFOPERAZONE SODIUM\SULBACTAM SODIUM
     Indication: CATARACT OPERATION
     Dosage: UNK UNK, UNKNOWN FREQ.
     Route: 041
     Dates: start: 20170614, end: 20170614
  19. MOXIFLOXACIN HYDROCHLORIDE. [Concomitant]
     Active Substance: MOXIFLOXACIN HYDROCHLORIDE
     Indication: CATARACT OPERATION
  20. FLUOROMETHOLONE. [Concomitant]
     Active Substance: FLUOROMETHOLONE
     Indication: CATARACT OPERATION
     Dosage: UNK UNK, UNKNOWN FREQ.
     Route: 031
     Dates: start: 20170607, end: 20170621
  21. CEFCAPENE PIVOXIL HYDROCHLORIDE [Concomitant]
     Active Substance: CEFCAPENE PIVOXIL HYDROCHLORIDE
     Indication: CATARACT OPERATION
     Dosage: UNK UNK, UNKNOWN FREQ.
     Route: 048
     Dates: start: 20170607, end: 20170610
  22. LOXOPROFEN SODIUM [Concomitant]
     Active Substance: LOXOPROFEN SODIUM
     Indication: CATARACT OPERATION
     Dosage: UNK UNK, UNKNOWN FREQ.
     Route: 048
     Dates: start: 20170607, end: 20170610
  23. CLEAR BONE [Concomitant]
     Dosage: UNK UNK, UNKNOWN FREQ.
     Route: 042
     Dates: start: 20180427, end: 20180427
  24. CLEAR BONE [Concomitant]
     Dosage: UNK UNK, UNKNOWN FREQ.
     Route: 042
     Dates: start: 20180720, end: 20180720
  25. CLEAR BONE [Concomitant]
     Dosage: UNK UNK, UNKNOWN FREQ.
     Route: 042
     Dates: start: 20181012, end: 20181012
  26. DERMOVATE [Concomitant]
     Active Substance: CLOBETASOL
     Indication: ARTHROPOD STING
     Dosage: UNK UNK, UNKNOWN FREQ.
     Route: 061
     Dates: start: 20180925, end: 20181011
  27. MECOBALAMIN [Concomitant]
     Active Substance: METHYLCOBALAMIN
     Indication: SPINAL STENOSIS
     Route: 048
  28. LOXONIN [Concomitant]
     Active Substance: LOXOPROFEN SODIUM
     Indication: ANALGESIC THERAPY
     Dosage: UNK UNK, UNKNOWN FREQ.
     Route: 048
     Dates: start: 20190115
  29. ENZALUTAMIDE [Suspect]
     Active Substance: ENZALUTAMIDE
     Indication: HORMONE-REFRACTORY PROSTATE CANCER
     Route: 048
     Dates: start: 20170413
  30. IOMERON [Suspect]
     Active Substance: IOMEPROL
     Dosage: UNK UNK, UNKNOWN FREQ.
     Route: 042
     Dates: start: 20181019, end: 20181019
  31. ZOLADEX LA [Concomitant]
     Active Substance: GOSERELIN ACETATE
     Indication: HORMONE-REFRACTORY PROSTATE CANCER
     Dosage: 10.8 MG, ONCE IN 3 MONTHS
     Route: 058
  32. SITAGLIPTIN PHOSPHATE MONOHYDRATE [Concomitant]
     Active Substance: SITAGLIPTIN PHOSPHATE
     Indication: TYPE 2 DIABETES MELLITUS
     Route: 048
  33. OLMESARTAN MEDOXOMIL. [Concomitant]
     Active Substance: OLMESARTAN MEDOXOMIL
     Indication: HYPERTENSION
     Route: 048
  34. GLIMEPIRIDE. [Concomitant]
     Active Substance: GLIMEPIRIDE
     Indication: DIABETES MELLITUS
     Dosage: 0.5 MG, ONCE DAILY
     Route: 048
     Dates: start: 20170526
  35. MOXIFLOXACIN HYDROCHLORIDE. [Concomitant]
     Active Substance: MOXIFLOXACIN HYDROCHLORIDE
     Indication: CATARACT OPERATION
     Dosage: UNK UNK, UNKNOWN FREQ.
     Route: 031
     Dates: start: 20170607, end: 20170904
  36. CEFCAPENE PIVOXIL HYDROCHLORIDE [Concomitant]
     Active Substance: CEFCAPENE PIVOXIL HYDROCHLORIDE
     Indication: CATARACT OPERATION
     Dosage: UNK UNK, UNKNOWN FREQ.
     Route: 048
     Dates: start: 20170614, end: 20170617
  37. ALFACALCIDOL [Concomitant]
     Active Substance: ALFACALCIDOL
     Indication: PRODUCT USED FOR UNKNOWN INDICATION
     Route: 048
     Dates: start: 20170701
  38. CLEAR BONE [Concomitant]
     Indication: BONE SCAN
     Dosage: UNK UNK, UNKNOWN FREQ.
     Route: 042
     Dates: start: 20171110, end: 20171110
  39. MAGNESIUM OXIDE. [Concomitant]
     Active Substance: MAGNESIUM OXIDE
     Indication: CONSTIPATION PROPHYLAXIS
     Dosage: UNK UNK, UNKNOWN FREQ.
     Route: 048
     Dates: start: 20180113
  40. ROSUVASTATIN CALCIUM. [Concomitant]
     Active Substance: ROSUVASTATIN CALCIUM
     Indication: DYSLIPIDAEMIA
     Route: 048
  41. WYSTAL [Concomitant]
     Active Substance: CEFOPERAZONE SODIUM\SULBACTAM SODIUM
     Indication: CATARACT OPERATION
     Dosage: UNK UNK, UNKNOWN FREQ.
     Route: 041
     Dates: start: 20170607, end: 20170607
  42. XYLOCAINE WITH EPINEPHRINE [Concomitant]
     Active Substance: EPINEPHRINE BITARTRATE\LIDOCAINE HYDROCHLORIDE
     Indication: CATARACT OPERATION
     Dosage: UNK UNK, UNKNOWN FREQ.
     Route: 061
     Dates: start: 20170614, end: 20170614
  43. NEPAFENAC [Concomitant]
     Active Substance: NEPAFENAC
     Indication: CATARACT OPERATION
     Dosage: UNK UNK, UNKNOWN FREQ.
     Route: 031
     Dates: start: 20170607, end: 20170904
  44. CEFCAPENE PIVOXIL HYDROCHLORIDE [Concomitant]
     Active Substance: CEFCAPENE PIVOXIL HYDROCHLORIDE
     Indication: INFECTION PROPHYLAXIS
     Dosage: UNK UNK, UNKNOWN FREQ.
     Route: 048
     Dates: start: 20190115
  45. LOXOPROFEN SODIUM [Concomitant]
     Active Substance: LOXOPROFEN SODIUM
     Indication: CATARACT OPERATION
     Dosage: UNK UNK, UNKNOWN FREQ.
     Route: 048
     Dates: start: 20170614, end: 20170617
  46. MAGNESIUM OXIDE. [Concomitant]
     Active Substance: MAGNESIUM OXIDE
     Indication: CONSTIPATION
     Dosage: UNK UNK, UNKNOWN FREQ.
     Route: 048
     Dates: start: 20171115, end: 20180112
  47. ORONINE                            /00088302/ [Concomitant]
     Indication: ARTHROPOD STING
     Dosage: UNK UNK, UNKNOWN FREQ.
     Route: 061
     Dates: start: 20180810, end: 20181019

REACTIONS (10)
  - Constipation [Recovered/Resolved]
  - Dental caries [Recovered/Resolved]
  - Seborrhoeic keratosis [Recovered/Resolved]
  - Diabetes mellitus [Recovered/Resolved]
  - Cataract operation [Recovered/Resolved]
  - Decreased appetite [Recovered/Resolved]
  - Fatigue [Recovered/Resolved]
  - Cataract operation [Recovered/Resolved]
  - Arthropod sting [Recovered/Resolved]
  - Contrast media allergy [Recovered/Resolved]

NARRATIVE: CASE EVENT DATE: 20170512
